FAERS Safety Report 17037945 (Version 2)
Quarter: 2020Q4

REPORT INFORMATION
  Report Type: Spontaneous
  Country: IT (occurrence: IT)
  Receive Date: 20191115
  Receipt Date: 20201125
  Transmission Date: 20210113
  Serious: Yes (Death, Life-Threatening, Other)
  Sender: FDA-Public Use
  Company Number: IT-AMGEN-ITASP2019188496

PATIENT

DRUGS (4)
  1. CARFILZOMIB [Suspect]
     Active Substance: CARFILZOMIB
     Dosage: 27 MILLIGRAM/SQ. METER, 10-MIN INFUSION ON DAY 1, 2, 8, 9, 15, AND 16 DURING CYCLES 1 THROUGH 12 AND
     Route: 065
  2. LENALIDOMIDE [Suspect]
     Active Substance: LENALIDOMIDE
     Indication: PLASMA CELL MYELOMA
     Dosage: 25 MILLIGRAM, DAYS 1 THROUGH 21
     Route: 065
  3. CARFILZOMIB [Suspect]
     Active Substance: CARFILZOMIB
     Indication: PLASMA CELL MYELOMA
     Dosage: 20 MILLIGRAM/SQ. METER, ON DAYS 1 AND 2 OF CYCLE 1
     Route: 065
  4. DEXAMETHASONE. [Suspect]
     Active Substance: DEXAMETHASONE
     Indication: PLASMA CELL MYELOMA
     Dosage: 20 MILLIGRAM, ON DAYS 1, 2, 8, 9, 15, 16, 21, AND 22
     Route: 065

REACTIONS (30)
  - Pneumonia [Fatal]
  - Thrombocytopenia [Unknown]
  - Pyrexia [Unknown]
  - Cardiac failure [Fatal]
  - Mesothelioma [Fatal]
  - Diarrhoea [Unknown]
  - Hepatic function abnormal [Unknown]
  - Neutropenia [Unknown]
  - Non-Hodgkin^s lymphoma [Unknown]
  - Dyspnoea [Unknown]
  - Infection [Fatal]
  - Atrial fibrillation [Unknown]
  - Rash [Unknown]
  - Anaemia [Unknown]
  - Escherichia infection [Unknown]
  - Cerebral haemorrhage [Unknown]
  - Myocardial ischaemia [Unknown]
  - Deep vein thrombosis [Unknown]
  - Renal impairment [Unknown]
  - Arrhythmia [Unknown]
  - Therapy partial responder [Unknown]
  - Plasma cell myeloma [Fatal]
  - Staphylococcal infection [Unknown]
  - Cerebrovascular accident [Unknown]
  - Hypertension [Unknown]
  - Therapy non-responder [Unknown]
  - Intraductal papillary mucinous neoplasm [Fatal]
  - Neuropathy peripheral [Unknown]
  - Colon cancer [Unknown]
  - Pneumonia klebsiella [Unknown]
